FAERS Safety Report 5692823-6 (Version None)
Quarter: 2008Q2

REPORT INFORMATION
  Report Type: 
  Country: None (occurrence: None)
  Receive Date: 20080401
  Receipt Date: 20080319
  Transmission Date: 20081010
  Serious: Yes (Other)
  Sender: FDA-Public Use
  Company Number: 2008S1002664

PATIENT
  Age: 45 Year
  Sex: Male

DRUGS (3)
  1. AZATHIOPRINE [Suspect]
     Dosage: 100 MG;TWICE A DAY : 150 MG;TWICE A DAY
  2. PSORALENS FOR SYSTEMIC USE (PSORALENS FOR SYSTEMIC USE) [Suspect]
     Indication: DERMATITIS ATOPIC
  3. CORTICOSTEROIDS (CORTICOSTEROIDS) [Concomitant]

REACTIONS (4)
  - LIP NEOPLASM MALIGNANT STAGE UNSPECIFIED [None]
  - LIP ULCERATION [None]
  - METASTASES TO LYMPH NODES [None]
  - METASTATIC SQUAMOUS CELL CARCINOMA [None]
